FAERS Safety Report 7078665-8 (Version None)
Quarter: 2010Q4

REPORT INFORMATION
  Report Type: 
  Country: None (occurrence: None)
  Receive Date: 20101101
  Receipt Date: 20101101
  Transmission Date: 20110411
  Serious: Yes (Other)
  Sender: FDA-Public Use
  Company Number: None

PATIENT
  Sex: Female
  Weight: 77.1115 kg

DRUGS (3)
  1. LEVOFLOXACIN [Suspect]
     Indication: COUGH
     Dates: start: 20100920, end: 20100926
  2. LEVOFLOXACIN [Suspect]
     Indication: PNEUMONIA
     Dates: start: 20100920, end: 20100926
  3. FLUTICASONE HFA AEROSOL INHALER [Concomitant]

REACTIONS (13)
  - ABDOMINAL PAIN UPPER [None]
  - AGITATION [None]
  - CHEST DISCOMFORT [None]
  - DIARRHOEA [None]
  - DYSPNOEA [None]
  - FATIGUE [None]
  - GAIT DISTURBANCE [None]
  - INSOMNIA [None]
  - MUSCLE SPASMS [None]
  - MYALGIA [None]
  - NERVOUSNESS [None]
  - PAIN IN EXTREMITY [None]
  - URTICARIA [None]
